FAERS Safety Report 14708941 (Version 3)
Quarter: 2020Q3

REPORT INFORMATION
  Report Type: Report from Study
  Country: ES (occurrence: ES)
  Receive Date: 20180403
  Receipt Date: 20180608
  Transmission Date: 20201105
  Serious: Yes (Hospitalization)
  Sender: FDA-Public Use
  Company Number: ES-JNJFOC-20180131856

PATIENT
  Age: 84 Year
  Sex: Male
  Weight: 87.9 kg

DRUGS (3)
  1. DARATUMUMAB [Suspect]
     Active Substance: DARATUMUMAB
     Indication: LUNG ADENOCARCINOMA
     Route: 042
     Dates: start: 20171108, end: 20171226
  2. ATEZOLIZUMAB. [Suspect]
     Active Substance: ATEZOLIZUMAB
     Indication: LUNG ADENOCARCINOMA
     Route: 042
     Dates: start: 20171226, end: 20171226
  3. DARATUMUMAB [Suspect]
     Active Substance: DARATUMUMAB
     Indication: LUNG ADENOCARCINOMA
     Route: 042
     Dates: start: 20180109, end: 20180109

REACTIONS (2)
  - Pneumonitis [Recovered/Resolved]
  - Atrial fibrillation [Recovered/Resolved]

NARRATIVE: CASE EVENT DATE: 20180116
